FAERS Safety Report 9838496 (Version 1)
Quarter: 2014Q1

REPORT INFORMATION
  Report Type: Spontaneous
  Country: US (occurrence: US)
  Receive Date: 20140123
  Receipt Date: 20140123
  Transmission Date: 20141002
  Serious: Yes (Other)
  Sender: FDA-Public Use
  Company Number: US-PFIZER INC-2014021061

PATIENT
  Sex: Male

DRUGS (2)
  1. EFFEXOR XR [Suspect]
     Indication: AUTONOMIC NERVOUS SYSTEM IMBALANCE
     Dosage: 37.5 MG, DAILY
  2. VITAMIN B12 [Concomitant]
     Dosage: UNK, MONTHLY

REACTIONS (8)
  - Medication residue present [Unknown]
  - Crohn^s disease [Unknown]
  - Device failure [Unknown]
  - Amnesia [Unknown]
  - Disorientation [Unknown]
  - Dizziness [Unknown]
  - Nausea [Unknown]
  - Feeling abnormal [Unknown]
